FAERS Safety Report 6969127-4 (Version None)
Quarter: 2010Q3

REPORT INFORMATION
  Report Type: 
  Country: None (occurrence: None)
  Receive Date: 20100907
  Receipt Date: 20100826
  Transmission Date: 20110219
  Serious: Yes (Hospitalization)
  Sender: FDA-Public Use
  Company Number: GXKR2010DE09714

PATIENT
  Age: 25 Year
  Sex: Female

DRUGS (4)
  1. METOCLOPRAMIDE (NGX) [Suspect]
     Route: 065
  2. TRAMADOL (NGX) [Suspect]
     Indication: ANALGESIC THERAPY
     Route: 065
  3. NSAID'S [Suspect]
     Route: 065
  4. CANNABIS [Suspect]

REACTIONS (13)
  - ABDOMINAL DISTENSION [None]
  - ANAEMIA [None]
  - CONSTIPATION [None]
  - CONVULSION [None]
  - HALLUCINATION [None]
  - HYPONATRAEMIA [None]
  - INAPPROPRIATE ANTIDIURETIC HORMONE SECRETION [None]
  - MEGACOLON [None]
  - MONOPARESIS [None]
  - PAIN [None]
  - POLYNEUROPATHY [None]
  - PORPHYRIA [None]
  - REVERSIBLE POSTERIOR LEUKOENCEPHALOPATHY SYNDROME [None]
